FAERS Safety Report 10976978 (Version 2)
Quarter: 2015Q2

REPORT INFORMATION
  Report Type: Spontaneous
  Country: US (occurrence: US)
  Receive Date: 20150402
  Receipt Date: 20150403
  Transmission Date: 20150821
  Serious: Yes (Hospitalization)
  Sender: FDA-Public Use
  Company Number: US-ROCHE-1559477

PATIENT
  Sex: Male

DRUGS (6)
  1. XOLAIR [Suspect]
     Active Substance: OMALIZUMAB
     Indication: ASTHMA
     Dosage: ONE IN EACH ARM
     Route: 065
     Dates: end: 20131124
  2. ALBUTEROL. [Concomitant]
     Active Substance: ALBUTEROL
  3. ATROVENT [Concomitant]
     Active Substance: IPRATROPIUM BROMIDE
  4. DULERA [Concomitant]
     Active Substance: FORMOTEROL FUMARATE DIHYDRATE\MOMETASONE FUROATE
     Indication: ASTHMA
     Route: 055
  5. XANAX [Concomitant]
     Active Substance: ALPRAZOLAM
  6. DILTIAZEM [Concomitant]
     Active Substance: DILTIAZEM
     Indication: TACHYCARDIA

REACTIONS (3)
  - Asthma [Unknown]
  - Bundle branch block right [Unknown]
  - Tachycardia [Unknown]
